FAERS Safety Report 5276297-5 (Version None)
Quarter: 2007Q1

REPORT INFORMATION
  Report Type: 
  Country: None (occurrence: None)
  Receive Date: 20070326
  Receipt Date: 20070314
  Transmission Date: 20070707
  Serious: Yes (Death, Life-Threatening, Other)
  Sender: FDA-Public Use
  Company Number: JP-PFIZER INC-2007013710

PATIENT
  Sex: Female

DRUGS (9)
  1. VFEND [Suspect]
     Indication: BRONCHOPULMONARY ASPERGILLOSIS
     Dosage: DAILY DOSE:240MG-FREQ:DAILY
     Route: 042
  2. VFEND [Suspect]
     Dosage: DAILY DOSE:400MG-FREQ:DAILY
     Route: 042
  3. VFEND [Suspect]
     Route: 042
     Dates: start: 20070215, end: 20070219
  4. TIENAM [Suspect]
     Indication: PNEUMONIA
     Dosage: TEXT:0.5G; 1G-FREQ:FREQUENCY: BID
     Route: 042
     Dates: start: 20070213, end: 20070218
  5. PREDONINE [Concomitant]
     Route: 042
  6. PRIDOL [Concomitant]
     Route: 042
     Dates: start: 20070206, end: 20070208
  7. OMEPRAL [Concomitant]
     Route: 042
  8. HALOPERIDOL [Concomitant]
     Route: 042
  9. VITAMEDIN CAPSULE [Concomitant]
     Route: 042

REACTIONS (3)
  - HAEMORRHAGE SUBCUTANEOUS [None]
  - INTERSTITIAL LUNG DISEASE [None]
  - PLATELET COUNT DECREASED [None]
